FAERS Safety Report 23953567 (Version 2)
Quarter: 2024Q3

REPORT INFORMATION
  Report Type: Report from Study
  Country: US (occurrence: US)
  Receive Date: 20240608
  Receipt Date: 20240708
  Transmission Date: 20241017
  Serious: Yes (Other)
  Sender: ABBVIE
  Company Number: US-ABBVIE-5789301

PATIENT
  Sex: Female

DRUGS (1)
  1. HUMIRA [Suspect]
     Active Substance: ADALIMUMAB
     Indication: Rheumatoid arthritis
     Dosage: FORM STRENGTH: 40 MILLIGRAM?CITRATE FREE
     Route: 058
     Dates: start: 20230929

REACTIONS (5)
  - Rotator cuff syndrome [Recovering/Resolving]
  - Arthralgia [Not Recovered/Not Resolved]
  - Wound dehiscence [Recovering/Resolving]
  - Joint noise [Unknown]
  - Suture related complication [Recovering/Resolving]

NARRATIVE: CASE EVENT DATE: 20240101
